FAERS Safety Report 9352819 (Version 5)
Quarter: 2013Q4

REPORT INFORMATION
  Report Type: Spontaneous
  Country: US (occurrence: US)
  Receive Date: 20130618
  Receipt Date: 20131213
  Transmission Date: 20140711
  Serious: Yes (Hospitalization)
  Sender: FDA-Public Use
  Company Number: US-BIOGENIDEC-2013BI052279

PATIENT
  Age: 39 Year
  Sex: Male

DRUGS (1)
  1. TYSABRI [Suspect]
     Indication: MULTIPLE SCLEROSIS
     Route: 042
     Dates: start: 20080317, end: 20130528

REACTIONS (6)
  - Cognitive disorder [Unknown]
  - Drug ineffective [Unknown]
  - Bacterial disease carrier [Unknown]
  - Urosepsis [Recovered/Resolved]
  - Aphagia [Unknown]
  - Progressive multiple sclerosis [Unknown]
